FAERS Safety Report 23874089 (Version 1)
Quarter: 2024Q2

REPORT INFORMATION
  Report Type: Spontaneous
  Country: US (occurrence: None)
  Receive Date: 20240517
  Receipt Date: 20240517
  Transmission Date: 20240716
  Serious: No
  Sender: FDA-Public Use
  Company Number: None

PATIENT
  Age: 77 Year
  Sex: Female
  Weight: 46.27 kg

DRUGS (10)
  1. ATORVASTATIN [Suspect]
     Active Substance: ATORVASTATIN
     Indication: Blood cholesterol
     Dosage: 90  PILL  1 PILL  BEDTIME MOUTH ?
     Route: 048
     Dates: start: 20240415, end: 20240427
  2. XARELTO [Concomitant]
     Active Substance: RIVAROXABAN
  3. ESTRADIOL [Concomitant]
     Active Substance: ESTRADIOL
  4. ZOLPIDEM [Concomitant]
     Active Substance: ZOLPIDEM TARTRATE
  5. VITAMIN B12 [Concomitant]
     Active Substance: CYANOCOBALAMIN
  6. VITAMIN D3 [Concomitant]
     Active Substance: CHOLECALCIFEROL
  7. VITAMIN C [Concomitant]
     Active Substance: ASCORBIC ACID
  8. VITAMIN B COMPLEX [Concomitant]
     Active Substance: CYANOCOBALAMIN\DEXPANTHENOL\NIACINAMIDE\PYRIDOXINE HYDROCHLORIDE\RIBOFLAVIN 5^-PHOSPHATE SODIUM\THIA
  9. COGNATE (BRAIN) [Concomitant]
  10. COQ-10(ANTIOXIDANT) [Concomitant]

REACTIONS (8)
  - Arthralgia [None]
  - Arthralgia [None]
  - Insomnia [None]
  - Myalgia [None]
  - Abdominal discomfort [None]
  - Pain in extremity [None]
  - Pain in extremity [None]
  - Therapy cessation [None]

NARRATIVE: CASE EVENT DATE: 20240424
